APPROVED DRUG PRODUCT: VARENICLINE TARTRATE
Active Ingredient: VARENICLINE TARTRATE
Strength: EQ 1MG BASE
Dosage Form/Route: TABLET;ORAL
Application: A216723 | Product #002 | TE Code: AB
Applicant: ZYDUS WORLDWIDE DMCC
Approved: Jun 12, 2023 | RLD: No | RS: No | Type: RX